FAERS Safety Report 5782199-8 (Version None)
Quarter: 2008Q2

REPORT INFORMATION
  Report Type: 
  Country: None (occurrence: None)
  Receive Date: 20080623
  Receipt Date: 20080619
  Transmission Date: 20081010
  Serious: Yes (Death, Hospitalization)
  Sender: FDA-Public Use
  Company Number: IL-SANOFI-SYNTHELABO-F01200701500

PATIENT
  Sex: Male
  Weight: 70 kg

DRUGS (6)
  1. CARTIA XT [Concomitant]
  2. LEUCOVORIN CALCIUM [Suspect]
     Route: 041
     Dates: start: 20071031, end: 20071031
  3. NORMITEN [Concomitant]
  4. FLUOROURACIL [Suspect]
     Route: 041
     Dates: start: 20071031, end: 20071031
  5. LIPITOR [Concomitant]
     Dosage: UNK
  6. OXALIPLATIN [Suspect]
     Indication: COLON CANCER
     Route: 041
     Dates: start: 20071031, end: 20071031

REACTIONS (2)
  - RENAL FAILURE [None]
  - STAPHYLOCOCCAL INFECTION [None]
